FAERS Safety Report 10266384 (Version 1)
Quarter: 2014Q2

REPORT INFORMATION
  Report Type: Spontaneous
  Country: US (occurrence: None)
  Receive Date: 20140625
  Receipt Date: 20140625
  Transmission Date: 20141212
  Serious: Yes (Other)
  Sender: FDA-Public Use
  Company Number: None

PATIENT
  Age: 75 Year
  Sex: Female
  Weight: 47.17 kg

DRUGS (3)
  1. GLIPIZIDE XL [Suspect]
     Indication: DIABETES MELLITUS
     Dosage: 5 MG 1 PILL MORNING MOUTH
     Route: 048
     Dates: start: 201401, end: 201403
  2. CENTRUM SILVER WOMEN [Concomitant]
  3. B 12 [Concomitant]

REACTIONS (2)
  - Nervousness [None]
  - Feeling abnormal [None]
